FAERS Safety Report 10830644 (Version 2)
Quarter: 2015Q1

REPORT INFORMATION
  Report Type: Spontaneous
  Country: MX (occurrence: MX)
  Receive Date: 20150219
  Receipt Date: 20150326
  Transmission Date: 20150721
  Serious: Yes (Other)
  Sender: FDA-Public Use
  Company Number: MX-SA-2015SA018915

PATIENT
  Sex: Male

DRUGS (7)
  1. TRITACE [Concomitant]
     Active Substance: RAMIPRIL
     Route: 048
  2. COPLAVIX [Concomitant]
     Active Substance: ASPIRIN\CLOPIDOGREL BISULFATE
     Dosage: (CLOPIDOGREL + ACETYLSALICYLIC?ACID), (75 MG + 100 MG, TABLETS)
     Route: 048
  3. NORVASC [Concomitant]
     Active Substance: AMLODIPINE BESYLATE
  4. TRILEPTAL [Concomitant]
     Active Substance: OXCARBAZEPINE
     Route: 048
  5. DILATREND [Concomitant]
     Active Substance: CARVEDILOL
     Route: 048
  6. LASIX [Concomitant]
     Active Substance: FUROSEMIDE
     Route: 048
  7. PLAVIX [Suspect]
     Active Substance: CLOPIDOGREL BISULFATE
     Route: 048

REACTIONS (2)
  - Chronic kidney disease [Unknown]
  - Drug ineffective [Unknown]
